FAERS Safety Report 8823164 (Version 1)
Quarter: 2012Q4

REPORT INFORMATION
  Report Type: 
  Country: MX (occurrence: MX)
  Receive Date: 20121003
  Receipt Date: 20121003
  Transmission Date: 20130627
  Serious: Yes (Other)
  Sender: FDA-Public Use
  Company Number: PHHY2010MX094861

PATIENT
  Sex: Female

DRUGS (1)
  1. ONBREZ [Suspect]
     Dosage: 1 DF, QD

REACTIONS (5)
  - Asphyxia [Unknown]
  - Nausea [Unknown]
  - Somnolence [Unknown]
  - Decreased appetite [Unknown]
  - Abasia [Unknown]
